FAERS Safety Report 6091568-0 (Version None)
Quarter: 2009Q1

REPORT INFORMATION
  Report Type: 
  Country: None (occurrence: None)
  Receive Date: 20090225
  Receipt Date: 20080116
  Transmission Date: 20090719
  Serious: No
  Sender: FDA-Public Use
  Company Number: A0703633A

PATIENT
  Age: 70 Year
  Sex: Male

DRUGS (12)
  1. VALTREX [Suspect]
     Indication: GENITAL HERPES
     Dosage: 500MG PER DAY
     Route: 048
  2. KLOR-CON [Concomitant]
  3. HYDROCHLOROTHIAZIDE [Concomitant]
  4. CELEBREX [Concomitant]
  5. ALLEGRA D 24 HOUR [Concomitant]
  6. NIASPAN [Concomitant]
  7. VIAGRA [Concomitant]
  8. VALTREX [Concomitant]
  9. VITAMIN E [Concomitant]
  10. L-LYSINE [Concomitant]
  11. ADVIL [Concomitant]
  12. VACCINE [Concomitant]

REACTIONS (4)
  - BURNING SENSATION [None]
  - DRUG INEFFECTIVE [None]
  - HEADACHE [None]
  - PARAESTHESIA [None]
